FAERS Safety Report 22107724 (Version 2)
Quarter: 2023Q1

REPORT INFORMATION
  Report Type: Spontaneous
  Country: BE (occurrence: BE)
  Receive Date: 20230317
  Receipt Date: 20230327
  Transmission Date: 20230417
  Serious: Yes (Hospitalization, Other)
  Sender: FDA-Public Use
  Company Number: BE-BAXTER-2023BAX015318

PATIENT
  Sex: Female

DRUGS (10)
  1. FLUCONAZOLE [Suspect]
     Active Substance: FLUCONAZOLE
     Indication: Evidence based treatment
     Dosage: 800 MG, QD
     Route: 065
     Dates: start: 2016
  2. FLUCONAZOLE [Suspect]
     Active Substance: FLUCONAZOLE
     Indication: Candida infection
     Dosage: 800 MG, DAILY, SOLUTION FOR INFUSION
     Route: 065
  3. LEVOFLOXACIN [Suspect]
     Active Substance: LEVOFLOXACIN
     Indication: Urinary tract infection
     Dosage: 750 MG, DAILY
     Route: 065
     Dates: start: 2016
  4. LEVOFLOXACIN [Suspect]
     Active Substance: LEVOFLOXACIN
     Indication: Evidence based treatment
     Dosage: 750 MG, DAILY
     Route: 065
  5. AMOXICILLIN\CLAVULANIC ACID [Suspect]
     Active Substance: AMOXICILLIN\CLAVULANIC ACID
     Indication: Urinary tract infection bacterial
     Dosage: 4 GRAM, QD
     Route: 065
     Dates: start: 2016
  6. AMOXICILLIN\CLAVULANIC ACID [Suspect]
     Active Substance: AMOXICILLIN\CLAVULANIC ACID
     Indication: Urinary tract infection
     Dosage: 4 GRAM, QD
     Route: 065
  7. CASPOFUNGIN [Suspect]
     Active Substance: CASPOFUNGIN
     Indication: Candida infection
     Dosage: UNK
     Route: 065
  8. ANIDULAFUNGIN [Suspect]
     Active Substance: ANIDULAFUNGIN
     Indication: Candida infection
     Dosage: 100 MILLIGRAM, QD
     Route: 065
  9. ANIDULAFUNGIN [Suspect]
     Active Substance: ANIDULAFUNGIN
     Dosage: 200 MILLIGRAM, (LOADING DOSE)
     Route: 065
  10. AMPHOTERICIN B [Concomitant]
     Active Substance: AMPHOTERICIN B
     Indication: Candida infection
     Dosage: UNK
     Route: 065

REACTIONS (7)
  - Septic pulmonary embolism [Recovered/Resolved]
  - Fungal endocarditis [Recovered/Resolved]
  - Candida infection [Recovered/Resolved]
  - Thrombophlebitis septic [Recovered/Resolved]
  - Device related sepsis [Recovered/Resolved]
  - Drug resistance [Unknown]
  - Pathogen resistance [Recovered/Resolved]
